FAERS Safety Report 9229090 (Version 1)
Quarter: 2013Q2

REPORT INFORMATION
  Report Type: Spontaneous
  Country: RU (occurrence: RU)
  Receive Date: 20130412
  Receipt Date: 20130412
  Transmission Date: 20140414
  Serious: Yes (Death, Life-Threatening, Other)
  Sender: FDA-Public Use
  Company Number: RU-ASTRAZENECA-2013SE23298

PATIENT
  Age: 10254 Day
  Sex: Male
  Weight: 53 kg

DRUGS (9)
  1. MEROPENEM [Suspect]
     Indication: PYREXIA
     Route: 042
     Dates: start: 20120704
  2. SEROQUEL [Suspect]
     Indication: RESTLESSNESS
     Route: 048
     Dates: start: 20120709
  3. HALOPERIDOL [Suspect]
     Indication: RESTLESSNESS
     Route: 042
     Dates: start: 20120709
  4. BAL8557 [Suspect]
     Indication: ZYGOMYCOSIS
     Route: 042
     Dates: start: 20120724, end: 20120725
  5. BAL8557 [Suspect]
     Indication: ZYGOMYCOSIS
     Route: 042
     Dates: start: 20120727, end: 20120810
  6. OLICLINOMEL N7-1000, EMULSION FOR INFUSION [Suspect]
     Indication: PARENTERAL NUTRITION
     Dosage: 1000 E
     Route: 042
     Dates: start: 20120727
  7. ALBUMIN [Concomitant]
     Dates: start: 20120725
  8. POSACONAZOLE [Concomitant]
     Dates: start: 20120709
  9. ANTINEOPLASTIC AGENTS [Concomitant]
     Indication: ACUTE MYELOID LEUKAEMIA
     Dates: start: 20120629, end: 20120705

REACTIONS (12)
  - Acute hepatic failure [Fatal]
  - Zygomycosis [Recovered/Resolved]
  - Acute respiratory failure [Fatal]
  - Pulmonary oedema [Fatal]
  - Multi-organ failure [Fatal]
  - Brain oedema [Fatal]
  - Pulmonary infarction [Not Recovered/Not Resolved]
  - Cerebral infarction [Not Recovered/Not Resolved]
  - Spleen congestion [Not Recovered/Not Resolved]
  - Peripheral artery thrombosis [Not Recovered/Not Resolved]
  - Acute myeloid leukaemia [Fatal]
  - Toxicity to various agents [Unknown]
